FAERS Safety Report 9261469 (Version 1)
Quarter: 2013Q2

REPORT INFORMATION
  Report Type: Spontaneous
  Country: NL (occurrence: NL)
  Receive Date: 20130429
  Receipt Date: 20130429
  Transmission Date: 20140414
  Serious: Yes (Death, Hospitalization, Other)
  Sender: FDA-Public Use
  Company Number: NL-ASTRAZENECA-2013SE28246

PATIENT
  Sex: Female

DRUGS (3)
  1. VANDETANIB [Suspect]
     Indication: MEDULLARY THYROID CANCER
     Route: 048
  2. VANDETANIB [Suspect]
     Indication: MEDULLARY THYROID CANCER
     Dosage: 1/3 DOSE
     Route: 048
  3. POTASSIUM TABLETS [Concomitant]

REACTIONS (4)
  - Jejunal perforation [Fatal]
  - Sepsis [Fatal]
  - Wound dehiscence [Fatal]
  - Rash [Recovered/Resolved]
